FAERS Safety Report 8954902 (Version 1)
Quarter: 2012Q4

REPORT INFORMATION
  Report Type: 
  Country: DE (occurrence: DE)
  Receive Date: 20121207
  Receipt Date: 20121207
  Transmission Date: 20130627
  Serious: Yes (Other)
  Sender: FDA-Public Use
  Company Number: CHPA2012DE024945

PATIENT

DRUGS (1)
  1. OTRIVEN (XYLOMETAZOLINE HYDROCHLORIDE) [Suspect]
     Dosage: Unk, Unk
     Route: 045

REACTIONS (2)
  - Epistaxis [Not Recovered/Not Resolved]
  - Nasal congestion [Not Recovered/Not Resolved]
